FAERS Safety Report 21334207 (Version 2)
Quarter: 2022Q3

REPORT INFORMATION
  Report Type: Spontaneous
  Country: US (occurrence: US)
  Receive Date: 20220914
  Receipt Date: 20220926
  Transmission Date: 20221027
  Serious: Yes (Death, Other)
  Sender: FDA-Public Use
  Company Number: US-OTSUKA-2022_044534

PATIENT
  Age: 34 Year
  Sex: Male
  Weight: 88 kg

DRUGS (10)
  1. ABILIFY MAINTENA [Suspect]
     Active Substance: ARIPIPRAZOLE
     Indication: Schizoaffective disorder
     Dosage: 400 MG
     Route: 030
     Dates: start: 20220826
  2. ABILIFY MAINTENA [Suspect]
     Active Substance: ARIPIPRAZOLE
     Indication: Bipolar disorder
  3. ABILIFY MAINTENA [Suspect]
     Active Substance: ARIPIPRAZOLE
     Indication: Anxiety
  4. INVEGA SUSTENNA [Suspect]
     Active Substance: PALIPERIDONE PALMITATE
     Indication: Schizophrenia
     Dosage: 234 MG
     Route: 065
  5. ABILIFY [Concomitant]
     Active Substance: ARIPIPRAZOLE
     Indication: Product used for unknown indication
     Dosage: 10 MG
     Route: 065
  6. ZYPREXA [Concomitant]
     Active Substance: OLANZAPINE
     Indication: Sleep disorder
     Dosage: 25 MG
     Route: 065
  7. BENADRYL [Concomitant]
     Active Substance: DIPHENHYDRAMINE HYDROCHLORIDE
     Indication: Sleep disorder
     Dosage: UNK
     Route: 065
  8. ZOLOFT [Concomitant]
     Active Substance: SERTRALINE HYDROCHLORIDE
     Indication: Product used for unknown indication
     Dosage: 100 MG
     Route: 065
  9. ALPRAZOLAM [Concomitant]
     Active Substance: ALPRAZOLAM
     Indication: Anxiety
     Dosage: PRN
     Route: 065
  10. ALPRAZOLAM [Concomitant]
     Active Substance: ALPRAZOLAM
     Indication: Agitation

REACTIONS (18)
  - Brain oedema [Fatal]
  - Brain herniation [Fatal]
  - Blood sodium decreased [Fatal]
  - Brain death [Unknown]
  - Hyperacusis [Not Recovered/Not Resolved]
  - Delirium [Not Recovered/Not Resolved]
  - Seizure [Unknown]
  - Loss of personal independence in daily activities [Unknown]
  - Feeling abnormal [Not Recovered/Not Resolved]
  - Heart rate increased [Unknown]
  - Mental disorder [Unknown]
  - Confusional state [Not Recovered/Not Resolved]
  - Palpitations [Recovered/Resolved]
  - Delusion [Not Recovered/Not Resolved]
  - Psychotic disorder [Not Recovered/Not Resolved]
  - Weight decreased [Not Recovered/Not Resolved]
  - Hypertension [Unknown]
  - Product use in unapproved indication [Unknown]

NARRATIVE: CASE EVENT DATE: 20220826
